FAERS Safety Report 6901421-5 (Version None)
Quarter: 2010Q3

REPORT INFORMATION
  Report Type: 
  Country: None (occurrence: None)
  Receive Date: 20100803
  Receipt Date: 20080124
  Transmission Date: 20110219
  Serious: No
  Sender: FDA-Public Use
  Company Number: US-PFIZER INC-2008005269

PATIENT
  Sex: Male
  Weight: 109.09 kg

DRUGS (16)
  1. LYRICA [Suspect]
     Indication: NEUROPATHY PERIPHERAL
     Dates: start: 20080101, end: 20080115
  2. GLIPIZIDE [Concomitant]
     Indication: TYPE 2 DIABETES MELLITUS
  3. METFORMIN HYDROCHLORIDE [Concomitant]
     Indication: TYPE 2 DIABETES MELLITUS
  4. METOPROLOL TARTRATE [Concomitant]
     Indication: BLADDER DISORDER
  5. TIKOSYN [Concomitant]
  6. AMLODIPINE [Concomitant]
     Indication: HYPERTENSION
  7. SERTRALINE HYDROCHLORIDE [Concomitant]
     Indication: DEPRESSION
  8. PROBENECID [Concomitant]
     Indication: GOUT
  9. OXYBUTYNIN CHLORIDE [Concomitant]
     Indication: BLADDER DISORDER
  10. WARFARIN SODIUM [Concomitant]
  11. FUROSEMIDE [Concomitant]
     Indication: SWELLING
  12. FERROUS SULFATE [Concomitant]
  13. MULTI-VITAMINS [Concomitant]
     Dosage: 1 TABLET
  14. ACETYLSALICYLIC ACID SRT [Concomitant]
     Indication: CORONARY ARTERY DISEASE
  15. NEXIUM [Concomitant]
     Indication: GASTROOESOPHAGEAL REFLUX DISEASE
  16. SIMVASTATIN [Concomitant]
     Indication: BLOOD CHOLESTEROL ABNORMAL

REACTIONS (5)
  - ENURESIS [None]
  - FEELING ABNORMAL [None]
  - GAIT DISTURBANCE [None]
  - OEDEMA PERIPHERAL [None]
  - PARAESTHESIA [None]
